FAERS Safety Report 5186352-6 (Version None)
Quarter: 2006Q4

REPORT INFORMATION
  Report Type: 
  Country: None (occurrence: None)
  Receive Date: 20061220
  Receipt Date: 20061212
  Transmission Date: 20070319
  Serious: Yes (Death)
  Sender: FDA-Public Use
  Company Number: AU-ELI_LILLY_AND_COMPANY-AU200612002576

PATIENT
  Age: 14 Year
  Sex: Female

DRUGS (4)
  1. ZYPREXA [Suspect]
  2. EFFEXOR [Concomitant]
  3. ENDEP [Concomitant]
  4. ZOLPIDEM TARTRATE [Concomitant]

REACTIONS (2)
  - AKATHISIA [None]
  - COMPLETED SUICIDE [None]
